FAERS Safety Report 7491873-7 (Version None)
Quarter: 2011Q2

REPORT INFORMATION
  Report Type: 
  Country: None (occurrence: None)
  Receive Date: 20110512
  Receipt Date: 20110420
  Transmission Date: 20111010
  Serious: Yes (Hospitalization, Other)
  Sender: FDA-Public Use
  Company Number: JPI-P-014849

PATIENT
  Age: 48 Year
  Sex: Female
  Weight: 58.9676 kg

DRUGS (5)
  1. ARMODAFINIL [Concomitant]
  2. PAROXETINE HYDROCHLORIDE [Concomitant]
  3. XYREM [Suspect]
     Indication: NARCOLEPSY
     Dosage: (,2 IN 1 D),ORAL , 9 GM (4.5 GM,2 IN 1 D),ORAL
     Route: 048
     Dates: start: 20100326
  4. XYREM [Suspect]
     Indication: NARCOLEPSY
     Dosage: (,2 IN 1 D),ORAL , 9 GM (4.5 GM,2 IN 1 D),ORAL
     Route: 048
     Dates: end: 20110401
  5. METHYLPHENIDATE HCL [Concomitant]

REACTIONS (2)
  - GALLBLADDER OPERATION [None]
  - CHOLELITHIASIS [None]
